FAERS Safety Report 8602912-1 (Version None)
Quarter: 2012Q3

REPORT INFORMATION
  Report Type: 
  Country: None (occurrence: None)
  Receive Date: 20120817
  Receipt Date: 20120813
  Transmission Date: 20120928
  Serious: Yes (Other)
  Sender: FDA-Public Use
  Company Number: SE-GLAXOSMITHKLINE-B0823240A

PATIENT
  Age: 69 Year
  Sex: Female
  Weight: 85 kg

DRUGS (1)
  1. FLUTICASONE FUROATE [Suspect]
     Indication: HYPERSENSITIVITY
     Route: 045

REACTIONS (3)
  - GLAUCOMA [None]
  - CATARACT [None]
  - VISUAL ACUITY REDUCED [None]
